FAERS Safety Report 5443737-8 (Version None)
Quarter: 2007Q3

REPORT INFORMATION
  Report Type: 
  Country: None (occurrence: None)
  Receive Date: 20070730
  Receipt Date: 20070403
  Transmission Date: 20080115
  Serious: Yes (Disabling, Other)
  Sender: FDA-Public Use
  Company Number: 237435

PATIENT
  Age: 60 Year
  Sex: Female

DRUGS (41)
  1. RITUXAN [Suspect]
     Indication: RHEUMATOID ARTHRITIS
     Dosage: 1000 MG, DAYS 1 + 15, INTRAVENOUS
     Route: 042
     Dates: start: 20070209
  2. RITUXAN [Suspect]
     Indication: SJOGREN'S SYNDROME
     Dosage: 1000 MG, DAYS 1 + 15, INTRAVENOUS
     Route: 042
     Dates: start: 20070209
  3. FORMESTANE (FORMESTANE) [Concomitant]
  4. VITAMIN (VITAMIN NOS) [Concomitant]
  5. NORAVID (DEFIBROTIDE) [Concomitant]
  6. METOLAZONE [Concomitant]
  7. ASPIRIN [Concomitant]
  8. CA++ (CALCIUM NOS) [Concomitant]
  9. ZYRTEC [Concomitant]
  10. POTASSIUM CHLORIDE [Concomitant]
  11. PREDNISONE TAB [Concomitant]
  12. PLAVIX [Concomitant]
  13. PROTONIX [Concomitant]
  14. HYDROXYZINE HCL (HYDROXYZINE HYDROCHLORIDE) [Concomitant]
  15. ZONEGRAN [Concomitant]
  16. SULPHUR (SULFUR) [Concomitant]
  17. HYDROXYCHLORQUINE (HYDROXYCHLOROQUINE SULFATE) [Concomitant]
  18. TIZANIDINE (TIZANIDINE HYDROCHLORIDE) [Concomitant]
  19. NASONEX [Concomitant]
  20. EXTRA STRENGTH TUMS (CALCIUM CARBONATE) [Concomitant]
  21. PERCOCET [Concomitant]
  22. AZMACORT INHALER (TRIAMCINOLONE ACETONIDE) [Concomitant]
  23. MAXAIR [Concomitant]
  24. VICODIN [Concomitant]
  25. VERMOX (MEBENDZOLE) [Concomitant]
  26. BIFENDATE(BIFENDATE) [Concomitant]
  27. LIDODERM [Concomitant]
  28. PROMETHEZINE HCL [Concomitant]
  29. FOSAMAX [Concomitant]
  30. ICAPS (MULTIVITAMINS NOS) [Concomitant]
  31. DIOVAN [Concomitant]
  32. DOCUSATE CA (DOCUSATE CALCIUM) [Concomitant]
  33. SULFASALAZINE ENTERIC COATED (SULFASALAZINE) [Concomitant]
  34. FLUOURIDE (FLUORIDE NOS) [Concomitant]
  35. BIOTENE MOUTHWASH (GLUCOSE OXIDASE, LACTOFERRING, LACTOPEROXIDASE, MUR [Concomitant]
  36. SALINE NASAL IRRIGATION (SODIUM CHLORIDE) [Concomitant]
  37. HYCODAN COUGH SYRUP (HOMATROPINE METHYLBROMIDE, HYDROCODONE BITARTRATE [Concomitant]
  38. ATROVENT [Concomitant]
  39. BENZONAATE (BENZONATATE) [Concomitant]
  40. ZYRTEC-D 12 HOUR [Concomitant]
  41. BENADRYL [Concomitant]

REACTIONS (1)
  - BONE PAIN [None]
